FAERS Safety Report 8138309-0 (Version None)
Quarter: 2012Q1

REPORT INFORMATION
  Report Type: 
  Country: None (occurrence: None)
  Receive Date: 20120215
  Receipt Date: 20120213
  Transmission Date: 20120608
  Serious: Yes (Hospitalization)
  Sender: FDA-Public Use
  Company Number: DK-JNJFOC-20111100036

PATIENT
  Sex: Male
  Weight: 109 kg

DRUGS (14)
  1. NEUPOGEN [Suspect]
     Indication: DIFFUSE LARGE B-CELL LYMPHOMA
     Route: 058
     Dates: start: 20110815
  2. RITUXIMAB [Suspect]
     Indication: DIFFUSE LARGE B-CELL LYMPHOMA
     Route: 042
     Dates: start: 20110901
  3. CYCLOPHOSPHAMIDE [Suspect]
     Indication: DIFFUSE LARGE B-CELL LYMPHOMA
     Route: 042
     Dates: start: 20110901
  4. SULFAMETHOXAZOLE [Concomitant]
     Indication: PROPHYLAXIS
     Route: 048
     Dates: start: 20110812
  5. DOXORUBICIN HCL [Suspect]
     Indication: DIFFUSE LARGE B-CELL LYMPHOMA
     Route: 042
     Dates: start: 20110901
  6. CYCLOPHOSPHAMIDE [Suspect]
     Route: 042
     Dates: start: 20110811
  7. NEUPOGEN [Suspect]
     Route: 058
     Dates: start: 20110904
  8. VINCRISTINE [Suspect]
     Indication: DIFFUSE LARGE B-CELL LYMPHOMA
     Route: 042
     Dates: start: 20110811, end: 20110901
  9. RITUXIMAB [Suspect]
     Route: 042
     Dates: start: 20110811
  10. PREDNISONE TAB [Suspect]
     Indication: DIFFUSE LARGE B-CELL LYMPHOMA
     Route: 048
     Dates: start: 20110811
  11. AMOXICILLIN AND CLAVULANATE POTASSIUM [Concomitant]
     Indication: PRODUCT USED FOR UNKNOWN INDICATION
     Route: 048
     Dates: start: 20110818
  12. CIPROFLOXACIN [Concomitant]
     Indication: PROPHYLAXIS
     Route: 048
     Dates: start: 20110818
  13. PREDNISONE TAB [Suspect]
     Route: 042
     Dates: start: 20110901
  14. DOXORUBICIN HCL [Suspect]
     Route: 042
     Dates: start: 20110811

REACTIONS (2)
  - ERYSIPELAS [None]
  - PNEUMONIA [None]
